FAERS Safety Report 12835825 (Version 1)
Quarter: 2016Q4

REPORT INFORMATION
  Report Type: Spontaneous
  Country: RS (occurrence: RS)
  Receive Date: 20161011
  Receipt Date: 20161011
  Transmission Date: 20170207
  Serious: Yes (Other)
  Sender: FDA-Public Use
  Company Number: RS-PFIZER INC-2016457961

PATIENT
  Age: 68 Year
  Sex: Male

DRUGS (1)
  1. SUTENT [Suspect]
     Active Substance: SUNITINIB MALATE
     Dosage: 50 MG, 1X/DAY, 4+2, (DAILY FOR FOUR WEEKS; AFTER THAT, THERE WERE TWO WEEKS OF PAUSE)
     Route: 048

REACTIONS (2)
  - Disease progression [Unknown]
  - Monoplegia [Unknown]

NARRATIVE: CASE EVENT DATE: 201609
